FAERS Safety Report 14940015 (Version 1)
Quarter: 2018Q2

REPORT INFORMATION
  Report Type: Spontaneous
  Country: US (occurrence: US)
  Receive Date: 20180507
  Receipt Date: 20180507
  Transmission Date: 20180711
  Serious: Yes (Hospitalization)
  Sender: FDA-Public Use
  Company Number: None

PATIENT
  Age: 63 Year
  Sex: Female
  Weight: 47.63 kg

DRUGS (4)
  1. HEPARIN 5 ML PREFILLED SYRINGE [Suspect]
     Active Substance: HEPARIN SODIUM
     Indication: LIVER ABSCESS
     Route: 040
     Dates: start: 20180220, end: 20180502
  2. HEPARIN 5 ML PREFILLED SYRINGE [Suspect]
     Active Substance: HEPARIN SODIUM
     Indication: MALNUTRITION
     Route: 040
     Dates: start: 20180220, end: 20180502
  3. 0.9% SODIUM CHLORIDE PREFILLED SYRINGE [Suspect]
     Active Substance: SODIUM CHLORIDE
     Indication: LIVER ABSCESS
     Route: 040
     Dates: start: 20180220, end: 20180502
  4. 0.45% SODIUM CHLORIDE 1000 ML [Concomitant]
     Dates: start: 20180220, end: 20180502

REACTIONS (2)
  - Serratia infection [None]
  - Product use issue [None]

NARRATIVE: CASE EVENT DATE: 20180502
